FAERS Safety Report 12772743 (Version 4)
Quarter: 2017Q1

REPORT INFORMATION
  Report Type: Report from Study
  Country: None (occurrence: US)
  Receive Date: 20160922
  Receipt Date: 20170228
  Transmission Date: 20170428
  Serious: Yes (Hospitalization, Congenital Anomaly)
  Sender: FDA-Public Use
  Company Number: US-AMAG PHARMACEUTICALS, INC.-AMAG201601923

PATIENT
  Age: 0 Day
  Sex: Male
  Weight: 2.92 kg

DRUGS (1)
  1. MAKENA [Suspect]
     Active Substance: HYDROXYPROGESTERONE CAPROATE
     Indication: EXPOSURE DURING PREGNANCY
     Dosage: 250 MG/ML, WEEKLY
     Route: 065
     Dates: start: 20160421, end: 20160823

REACTIONS (4)
  - Cardiac murmur [Not Recovered/Not Resolved]
  - Ankyloglossia congenital [Not Recovered/Not Resolved]
  - Jaundice neonatal [Recovered/Resolved]
  - Eyelid ptosis [Not Recovered/Not Resolved]

NARRATIVE: CASE EVENT DATE: 20160907
